FAERS Safety Report 25832530 (Version 1)
Quarter: 2025Q3

REPORT INFORMATION
  Report Type: Spontaneous
  Country: EU (occurrence: EU)
  Receive Date: 20250922
  Receipt Date: 20250922
  Transmission Date: 20251020
  Serious: Yes (Hospitalization, Disabling, Congenital Anomaly, Other)
  Sender: MYLAN
  Company Number: EU-EMB-M202011808-1

PATIENT
  Sex: Male
  Weight: 2.88 kg

DRUGS (56)
  1. GABAPENTIN [Suspect]
     Active Substance: GABAPENTIN
     Indication: Complex regional pain syndrome
     Dosage: 600 MILLIGRAM, TID
     Dates: start: 202009, end: 202106
  2. GABAPENTIN [Suspect]
     Active Substance: GABAPENTIN
     Dosage: 600 MILLIGRAM, TID
     Dates: start: 202009, end: 202106
  3. GABAPENTIN [Suspect]
     Active Substance: GABAPENTIN
     Dosage: 600 MILLIGRAM, TID
     Route: 064
     Dates: start: 202009, end: 202106
  4. GABAPENTIN [Suspect]
     Active Substance: GABAPENTIN
     Dosage: 600 MILLIGRAM, TID
     Route: 064
     Dates: start: 202009, end: 202106
  5. GABAPENTIN [Suspect]
     Active Substance: GABAPENTIN
     Dosage: 600 MILLIGRAM, TID
     Dates: start: 202009, end: 202106
  6. GABAPENTIN [Suspect]
     Active Substance: GABAPENTIN
     Dosage: 600 MILLIGRAM, TID
     Dates: start: 202009, end: 202106
  7. GABAPENTIN [Suspect]
     Active Substance: GABAPENTIN
     Dosage: 600 MILLIGRAM, TID
     Route: 064
     Dates: start: 202009, end: 202106
  8. GABAPENTIN [Suspect]
     Active Substance: GABAPENTIN
     Dosage: 600 MILLIGRAM, TID
     Route: 064
     Dates: start: 202009, end: 202106
  9. PALEXIA [Suspect]
     Active Substance: TAPENTADOL HYDROCHLORIDE
     Indication: Complex regional pain syndrome
  10. PALEXIA [Suspect]
     Active Substance: TAPENTADOL HYDROCHLORIDE
  11. PALEXIA [Suspect]
     Active Substance: TAPENTADOL HYDROCHLORIDE
     Route: 064
  12. PALEXIA [Suspect]
     Active Substance: TAPENTADOL HYDROCHLORIDE
     Route: 064
  13. PALEXIA [Suspect]
     Active Substance: TAPENTADOL HYDROCHLORIDE
  14. PALEXIA [Suspect]
     Active Substance: TAPENTADOL HYDROCHLORIDE
  15. PALEXIA [Suspect]
     Active Substance: TAPENTADOL HYDROCHLORIDE
     Route: 064
  16. PALEXIA [Suspect]
     Active Substance: TAPENTADOL HYDROCHLORIDE
     Route: 064
  17. OCREVUS [Suspect]
     Active Substance: OCRELIZUMAB
     Indication: Multiple sclerosis
  18. OCREVUS [Suspect]
     Active Substance: OCRELIZUMAB
  19. OCREVUS [Suspect]
     Active Substance: OCRELIZUMAB
     Route: 064
  20. OCREVUS [Suspect]
     Active Substance: OCRELIZUMAB
     Route: 064
  21. OCREVUS [Suspect]
     Active Substance: OCRELIZUMAB
  22. OCREVUS [Suspect]
     Active Substance: OCRELIZUMAB
  23. OCREVUS [Suspect]
     Active Substance: OCRELIZUMAB
     Route: 064
  24. OCREVUS [Suspect]
     Active Substance: OCRELIZUMAB
     Route: 064
  25. HYDROMORPHONE [Suspect]
     Active Substance: HYDROMORPHONE
     Indication: Complex regional pain syndrome
     Dosage: 2.6 MILLIGRAM, TID
     Dates: start: 202009, end: 202106
  26. HYDROMORPHONE [Suspect]
     Active Substance: HYDROMORPHONE
     Dosage: 2.6 MILLIGRAM, TID
     Dates: start: 202009, end: 202106
  27. HYDROMORPHONE [Suspect]
     Active Substance: HYDROMORPHONE
     Dosage: 2.6 MILLIGRAM, TID
     Route: 064
     Dates: start: 202009, end: 202106
  28. HYDROMORPHONE [Suspect]
     Active Substance: HYDROMORPHONE
     Dosage: 2.6 MILLIGRAM, TID
     Route: 064
     Dates: start: 202009, end: 202106
  29. HYDROMORPHONE [Suspect]
     Active Substance: HYDROMORPHONE
     Dosage: 2.6 MILLIGRAM, TID
     Dates: start: 202009, end: 202106
  30. HYDROMORPHONE [Suspect]
     Active Substance: HYDROMORPHONE
     Dosage: 2.6 MILLIGRAM, TID
     Dates: start: 202009, end: 202106
  31. HYDROMORPHONE [Suspect]
     Active Substance: HYDROMORPHONE
     Dosage: 2.6 MILLIGRAM, TID
     Route: 064
     Dates: start: 202009, end: 202106
  32. HYDROMORPHONE [Suspect]
     Active Substance: HYDROMORPHONE
     Dosage: 2.6 MILLIGRAM, TID
     Route: 064
     Dates: start: 202009, end: 202106
  33. ACETAMINOPHEN [Concomitant]
     Active Substance: ACETAMINOPHEN
     Indication: Headache
  34. ACETAMINOPHEN [Concomitant]
     Active Substance: ACETAMINOPHEN
  35. ACETAMINOPHEN [Concomitant]
     Active Substance: ACETAMINOPHEN
     Route: 064
  36. ACETAMINOPHEN [Concomitant]
     Active Substance: ACETAMINOPHEN
     Route: 064
  37. ACETAMINOPHEN [Concomitant]
     Active Substance: ACETAMINOPHEN
  38. ACETAMINOPHEN [Concomitant]
     Active Substance: ACETAMINOPHEN
  39. ACETAMINOPHEN [Concomitant]
     Active Substance: ACETAMINOPHEN
     Route: 064
  40. ACETAMINOPHEN [Concomitant]
     Active Substance: ACETAMINOPHEN
     Route: 064
  41. INSULIN NOS [Concomitant]
     Active Substance: INSULIN NOS
     Indication: Gestational diabetes
  42. INSULIN NOS [Concomitant]
     Active Substance: INSULIN NOS
  43. INSULIN NOS [Concomitant]
     Active Substance: INSULIN NOS
     Route: 064
  44. INSULIN NOS [Concomitant]
     Active Substance: INSULIN NOS
     Route: 064
  45. INSULIN NOS [Concomitant]
     Active Substance: INSULIN NOS
  46. INSULIN NOS [Concomitant]
     Active Substance: INSULIN NOS
  47. INSULIN NOS [Concomitant]
     Active Substance: INSULIN NOS
     Route: 064
  48. INSULIN NOS [Concomitant]
     Active Substance: INSULIN NOS
     Route: 064
  49. IBUPROFEN [Concomitant]
     Active Substance: IBUPROFEN
     Indication: Headache
  50. IBUPROFEN [Concomitant]
     Active Substance: IBUPROFEN
  51. IBUPROFEN [Concomitant]
     Active Substance: IBUPROFEN
     Route: 064
  52. IBUPROFEN [Concomitant]
     Active Substance: IBUPROFEN
     Route: 064
  53. IBUPROFEN [Concomitant]
     Active Substance: IBUPROFEN
  54. IBUPROFEN [Concomitant]
     Active Substance: IBUPROFEN
  55. IBUPROFEN [Concomitant]
     Active Substance: IBUPROFEN
     Route: 064
  56. IBUPROFEN [Concomitant]
     Active Substance: IBUPROFEN
     Route: 064

REACTIONS (8)
  - Non-epileptic paroxysmal event [Recovered/Resolved]
  - Constipation [Recovered/Resolved]
  - Poor feeding infant [Recovered/Resolved]
  - Congenital megacolon [Recovered/Resolved]
  - Hypogammaglobulinaemia [Recovered/Resolved]
  - Respiratory syncytial virus bronchitis [Recovered/Resolved]
  - Otitis media [Recovered/Resolved]
  - Foetal exposure during pregnancy [Recovered/Resolved]

NARRATIVE: CASE EVENT DATE: 20210901
